FAERS Safety Report 7780035-1 (Version None)
Quarter: 2011Q3

REPORT INFORMATION
  Report Type: 
  Country: None (occurrence: None)
  Receive Date: 20110927
  Receipt Date: 20110921
  Transmission Date: 20111222
  Serious: Yes (Death, Hospitalization)
  Sender: FDA-Public Use
  Company Number: US-BRISTOL-MYERS SQUIBB COMPANY-14407936

PATIENT
  Age: 75 Year
  Sex: Female
  Weight: 73 kg

DRUGS (15)
  1. OXYCONTIN [Concomitant]
     Route: 065
  2. POTASSIUM CHLORIDE [Concomitant]
  3. TOCOPHEROLS [Concomitant]
  4. SPIRIVA [Concomitant]
  5. ACTONEL [Concomitant]
  6. VICODIN [Concomitant]
     Route: 065
  7. CETUXIMAB [Suspect]
     Indication: NON-SMALL CELL LUNG CANCER METASTATIC
     Dosage: THERAPY STARTED ON 15SEP08. INTERRUPTED ON 06OCT08(22D)
     Route: 042
     Dates: start: 20080915
  8. ALIMTA [Suspect]
     Indication: NON-SMALL CELL LUNG CANCER METASTATIC
     Dosage: THERAPY STARTED ON 15SEP08.
     Route: 042
     Dates: start: 20080915, end: 20081006
  9. HYZAAR [Concomitant]
     Dosage: 1 DOSAGE FORM = 100/25 MG.
  10. PROAIR HFA [Concomitant]
  11. VERAPAMIL [Concomitant]
  12. LEVOTHYROXINE SODIUM [Concomitant]
  13. PREMARIN [Concomitant]
  14. MULTI-VITAMIN [Concomitant]
  15. FOLIC ACID [Concomitant]
     Route: 065

REACTIONS (3)
  - BACK PAIN [None]
  - EPISTAXIS [None]
  - NEOPLASM MALIGNANT [None]
